FAERS Safety Report 12498198 (Version 1)
Quarter: 2016Q2

REPORT INFORMATION
  Report Type: Spontaneous
  Country: FR (occurrence: FR)
  Receive Date: 20160627
  Receipt Date: 20160627
  Transmission Date: 20160815
  Serious: Yes (Other)
  Sender: FDA-Public Use
  Company Number: FR-009507513-1606FRA009214

PATIENT
  Sex: Male
  Weight: 105 kg

DRUGS (18)
  1. FUROSEMIDE SANDOZ [Suspect]
     Active Substance: FUROSEMIDE
     Route: 048
  2. INEXIUM (ESOMEPRAZOLE MAGNESIUM) [Concomitant]
     Active Substance: ESOMEPRAZOLE MAGNESIUM
  3. OXYNORM [Concomitant]
     Active Substance: OXYCODONE HYDROCHLORIDE
     Indication: EPILEPSY
  4. CONTRAMAL [Concomitant]
     Active Substance: TRAMADOL HYDROCHLORIDE
  5. DRIPTANE [Concomitant]
     Active Substance: OXYBUTYNIN
  6. BACLOFEN. [Concomitant]
     Active Substance: BACLOFEN
  7. ALTEISDUO [Concomitant]
     Active Substance: HYDROCHLOROTHIAZIDE\OLMESARTAN MEDOXOMIL
  8. NEURONTIN [Concomitant]
     Active Substance: GABAPENTIN
  9. SODIUM (UNSPECIFIED) [Concomitant]
     Dosage: UNK, THRICE A DAY
  10. DIFFU-K [Concomitant]
     Active Substance: POTASSIUM CHLORIDE
  11. TRILEPTAL [Concomitant]
     Active Substance: OXCARBAZEPINE
  12. DANTRIUM [Concomitant]
     Active Substance: DANTROLENE SODIUM
  13. SIMVASTATIN. [Concomitant]
     Active Substance: SIMVASTATIN
     Route: 048
  14. SINEMET [Suspect]
     Active Substance: CARBIDOPA\LEVODOPA
     Indication: PARKINSON^S DISEASE
     Dosage: 0.5 DF, THRICE A DAY
     Route: 048
     Dates: start: 2010
  15. ATARAX [Concomitant]
     Active Substance: HYDROXYZINE\HYDROXYZINE HYDROCHLORIDE
  16. METFORMIN [Concomitant]
     Active Substance: METFORMIN HYDROCHLORIDE
  17. AMLODIPINE [Concomitant]
     Active Substance: AMLODIPINE BESYLATE
  18. PREVISCAN [Concomitant]
     Active Substance: FLUINDIONE

REACTIONS (3)
  - Cardiac failure [Unknown]
  - Wrong technique in product usage process [Unknown]
  - Tremor [Unknown]
